FAERS Safety Report 22390101 (Version 1)
Quarter: 2023Q2

REPORT INFORMATION
  Report Type: Spontaneous
  Country: CA (occurrence: CA)
  Receive Date: 20230531
  Receipt Date: 20230531
  Transmission Date: 20230721
  Serious: Yes (Hospitalization, Other)
  Sender: FDA-Public Use
  Company Number: CA-BAYER-2023A070461

PATIENT
  Age: 26 Year
  Sex: Female

DRUGS (1)
  1. KYLEENA [Suspect]
     Active Substance: LEVONORGESTREL
     Indication: Contraception
     Dosage: 17.5?G/DAY
     Route: 015
     Dates: start: 20210722, end: 20230518

REACTIONS (5)
  - Ectopic pregnancy with contraceptive device [Recovering/Resolving]
  - Abdominal pain [Recovering/Resolving]
  - Vaginal haemorrhage [Recovering/Resolving]
  - Ascites [Recovering/Resolving]
  - Drug ineffective [None]

NARRATIVE: CASE EVENT DATE: 20230515
